FAERS Safety Report 19565501 (Version 3)
Quarter: 2023Q2

REPORT INFORMATION
  Report Type: Spontaneous
  Country: GB (occurrence: GB)
  Receive Date: 20210715
  Receipt Date: 20230530
  Transmission Date: 20230721
  Serious: Yes (Hospitalization, Other)
  Sender: FDA-Public Use
  Company Number: GB-NOVARTISPH-NVSC2021GB150987

PATIENT
  Age: 12 Week
  Sex: Male

DRUGS (4)
  1. ZOLGENSMA [Suspect]
     Active Substance: ONASEMNOGENE ABEPARVOVEC-XIOI
     Indication: Spinal muscular atrophy
     Dosage: UNK, ONCE/SINGLE
     Route: 042
     Dates: start: 20210622
  2. ZOLGENSMA [Suspect]
     Active Substance: ONASEMNOGENE ABEPARVOVEC-XIOI
     Dosage: UNK, ONCE/SINGLE
     Route: 042
     Dates: start: 20210622
  3. PREDNISOLONE [Concomitant]
     Active Substance: PREDNISOLONE
     Indication: Product used for unknown indication
     Dosage: 5 MG, QD
     Route: 065
     Dates: start: 20210621, end: 20210705
  4. LANSOPRAZOLE [Concomitant]
     Active Substance: LANSOPRAZOLE
     Indication: Product used for unknown indication
     Dosage: 3.75 MG, QD
     Route: 065
     Dates: start: 20210621, end: 20210705

REACTIONS (12)
  - Bronchiolitis [Unknown]
  - Monocytosis [Recovered/Resolved]
  - Pneumothorax [Recovered/Resolved]
  - Respiratory rate increased [Unknown]
  - Oxygen saturation decreased [Unknown]
  - Malaise [Unknown]
  - Pneumonia aspiration [Unknown]
  - White blood cell count increased [Unknown]
  - Vomiting [Unknown]
  - Blood urea increased [Unknown]
  - Dehydration [Unknown]
  - Pallor [Unknown]

NARRATIVE: CASE EVENT DATE: 20210623
